FAERS Safety Report 8247058-X (Version None)
Quarter: 2012Q1

REPORT INFORMATION
  Report Type: 
  Country: None (occurrence: None)
  Receive Date: 20120330
  Receipt Date: 20120326
  Transmission Date: 20120608
  Serious: Yes (Death, Other)
  Sender: FDA-Public Use
  Company Number: DE-JNJFOC-20120313899

PATIENT
  Sex: Male

DRUGS (19)
  1. CYCLOPHOSPHAMIDE [Suspect]
     Indication: POST TRANSPLANT LYMPHOPROLIFERATIVE DISORDER
     Dosage: CYCLE 2
     Route: 065
  2. DOXORUBICIN HCL [Suspect]
     Indication: POST TRANSPLANT LYMPHOPROLIFERATIVE DISORDER
     Dosage: CYCLE 2
     Route: 042
  3. CYCLOPHOSPHAMIDE [Suspect]
     Dosage: CYCLE 1
     Route: 065
  4. BLEOMYCIN SULFATE [Suspect]
     Indication: POST TRANSPLANT LYMPHOPROLIFERATIVE DISORDER
     Dosage: CYCLE 2
     Route: 065
  5. BLEOMYCIN SULFATE [Suspect]
     Dosage: CYCLE 1
     Route: 065
  6. BORTEZOMIB [Suspect]
     Indication: POST TRANSPLANT LYMPHOPROLIFERATIVE DISORDER
     Dosage: CYCLE 1
     Route: 065
  7. ETOPOSIDE [Suspect]
     Dosage: CYCLE 1
     Route: 065
  8. PREDNISOLONE [Suspect]
     Indication: POST TRANSPLANT LYMPHOPROLIFERATIVE DISORDER
     Dosage: CYCLE 2
     Route: 065
  9. PROCARBAZINE HYDROCHLORIDE [Suspect]
     Dosage: CYCLE 2
     Route: 065
  10. BORTEZOMIB [Suspect]
     Dosage: CYCLE 2
     Route: 065
  11. PROCARBAZINE HYDROCHLORIDE [Suspect]
     Indication: POST TRANSPLANT LYMPHOPROLIFERATIVE DISORDER
     Dosage: CYCLE 1
     Route: 065
  12. PREDNISOLONE [Suspect]
     Dosage: CYCLE 1
     Route: 065
  13. DOXORUBICIN HCL [Suspect]
     Dosage: CYCLE 1
     Route: 042
  14. DEXAMETHASONE [Suspect]
     Dosage: CYCLE 2
     Route: 065
  15. ETOPOSIDE [Suspect]
     Indication: POST TRANSPLANT LYMPHOPROLIFERATIVE DISORDER
     Dosage: CYCLE 2
     Route: 065
  16. VINCRISTINE [Suspect]
     Indication: POST TRANSPLANT LYMPHOPROLIFERATIVE DISORDER
     Dosage: CYCLE 1
     Route: 065
  17. VINCRISTINE [Suspect]
     Dosage: CYCLE 2
     Route: 065
  18. DEXAMETHASONE [Suspect]
     Indication: POST TRANSPLANT LYMPHOPROLIFERATIVE DISORDER
     Dosage: CYCLE 1
     Route: 065
  19. NEUPOGEN [Concomitant]
     Route: 065

REACTIONS (4)
  - CYTOMEGALOVIRUS CHORIORETINITIS [None]
  - NEUTROPENIA [None]
  - PLASMABLASTIC LYMPHOMA [None]
  - INFECTION [None]
